FAERS Safety Report 9587072 (Version 1)
Quarter: 2013Q4

REPORT INFORMATION
  Report Type: Spontaneous
  Country: GB (occurrence: GB)
  Receive Date: 20131003
  Receipt Date: 20131003
  Transmission Date: 20140711
  Serious: Yes (Death, Hospitalization, Other)
  Sender: FDA-Public Use
  Company Number: GB-PFIZER INC-2013278062

PATIENT
  Age: 47 Year
  Sex: Male
  Weight: 115.2 kg

DRUGS (7)
  1. CISPLATIN [Suspect]
     Indication: OESOPHAGEAL CANCER METASTATIC
     Dosage: 128 (NO UNITS PROVIDED)
     Route: 042
  2. XELODA [Suspect]
     Indication: OESOPHAGEAL CANCER METASTATIC
     Dosage: 1000 MG, 2X/DAY
     Route: 048
     Dates: start: 20130407, end: 20130422
  3. HERCEPTIN [Suspect]
     Indication: OESOPHAGEAL CANCER METASTATIC
     Dosage: 924 MG, UNK
     Route: 042
     Dates: start: 20130422
  4. ONDANSETRON [Concomitant]
     Indication: ENTEROCOLITIS
     Dosage: 8 MG, 1X/DAY
     Route: 048
     Dates: start: 20130417
  5. DEXAMETHASONE [Concomitant]
     Indication: ENTEROCOLITIS
     Dosage: 4 MG, 2X/DAY
     Route: 048
     Dates: start: 20130417, end: 20130419
  6. MAXOLON [Concomitant]
     Indication: ENTEROCOLITIS
     Dosage: 10 MG, 4X/DAY
     Route: 048
     Dates: start: 20130417
  7. CODEINE PHOSPHATE [Concomitant]
     Dosage: 6 MG, 4X/DAY
     Route: 048

REACTIONS (5)
  - Enterocolitis [Fatal]
  - Diarrhoea [Fatal]
  - Neutropenia [Not Recovered/Not Resolved]
  - Circulatory collapse [Unknown]
  - Shock [Unknown]
